FAERS Safety Report 14303536 (Version 2)
Quarter: 2024Q4

REPORT INFORMATION
  Report Type: Spontaneous
  Country: ES (occurrence: ES)
  Receive Date: 20171219
  Receipt Date: 20241125
  Transmission Date: 20250115
  Serious: Yes (Other)
  Sender: OTSUKA
  Company Number: ES-BRISTOL-MYERS SQUIBB COMPANY-BMS-2017-091804

PATIENT
  Age: 56 Year
  Sex: Female

DRUGS (2)
  1. ABILIFY [Suspect]
     Active Substance: ARIPIPRAZOLE
     Indication: Product used for unknown indication
     Dosage: 10 MG, UNK
     Route: 048
  2. ABILIFY MAINTENA [Suspect]
     Active Substance: ARIPIPRAZOLE
     Indication: Product used for unknown indication
     Dosage: 300 MG, UNK
     Route: 065

REACTIONS (5)
  - Depressed level of consciousness [Unknown]
  - Psychomotor retardation [Unknown]
  - Disorientation [Unknown]
  - Parkinsonism [Unknown]
  - Muscle rigidity [Unknown]
